APPROVED DRUG PRODUCT: OZEMPIC
Active Ingredient: SEMAGLUTIDE
Strength: 2MG/1.5ML (1.34MG/ML)
Dosage Form/Route: SOLUTION;SUBCUTANEOUS
Application: N209637 | Product #001
Applicant: NOVO NORDISK INC
Approved: Dec 5, 2017 | RLD: Yes | RS: No | Type: DISCN

PATENTS:
Patent 8129343 | Expires: Dec 5, 2031
Patent 8536122 | Expires: Mar 20, 2026
Patent 10335462 | Expires: Jun 21, 2033
Patent 9687611 | Expires: Feb 27, 2027
Patent 10376652 | Expires: Jan 20, 2026
Patent 9861757 | Expires: Jan 20, 2026
Patent 9616180 | Expires: Jan 20, 2026
Patent 10357616 | Expires: Jan 20, 2026
Patent 9457154 | Expires: Sep 27, 2027
Patent 8920383 | Expires: Jul 17, 2026
Patent 9775953 | Expires: Jul 17, 2026
Patent 11097063 | Expires: Jul 17, 2026
Patent RE46363 | Expires: Aug 3, 2026
Patent 9108002 | Expires: Jan 20, 2026
Patent 9132239 | Expires: Feb 1, 2032
Patent 10220155 | Expires: Jul 17, 2026

EXCLUSIVITY:
Code: I-961 | Date: Jan 28, 2028